FAERS Safety Report 14346361 (Version 1)
Quarter: 2018Q1

REPORT INFORMATION
  Report Type: Spontaneous
  Country: CN (occurrence: CN)
  Receive Date: 20180103
  Receipt Date: 20180103
  Transmission Date: 20180509
  Serious: Yes (Hospitalization)
  Sender: FDA-Public Use
  Company Number: CN-PFIZER INC-2018000655

PATIENT
  Age: 52 Year
  Sex: Female

DRUGS (1)
  1. LYRICA [Suspect]
     Active Substance: PREGABALIN
     Indication: NEURALGIA
     Dosage: 1 CAPSULE, 2X/DAY
     Route: 048
     Dates: start: 20171215, end: 20171218

REACTIONS (1)
  - Drug eruption [Recovering/Resolving]

NARRATIVE: CASE EVENT DATE: 20171215
